FAERS Safety Report 9693380 (Version 10)
Quarter: 2015Q3

REPORT INFORMATION
  Report Type: Spontaneous
  Country: CA (occurrence: CA)
  Receive Date: 20131118
  Receipt Date: 20150810
  Transmission Date: 20151125
  Serious: Yes (Other)
  Sender: FDA-Public Use
  Company Number: CA-GLAXOSMITHKLINE-A1039594A

PATIENT
  Age: 52 Year
  Sex: Female
  Weight: 108 kg

DRUGS (9)
  1. BENLYSTA [Suspect]
     Active Substance: BELIMUMAB
     Indication: SYSTEMIC LUPUS ERYTHEMATOSUS
     Dosage: WKS 0, 2, 4 THEN EVERY 4 WKSDOSE OF BENLYSTA INCREASED TO 1045 MG INDICATED ON FOLLOW UP RECD. [...]
     Route: 042
     Dates: start: 20130826
  2. METFORMIN [Concomitant]
     Active Substance: METFORMIN HYDROCHLORIDE
     Indication: PRODUCT USED FOR UNKNOWN INDICATION
     Dosage: 500 MG, UNK
  3. BENLYSTA [Suspect]
     Active Substance: BELIMUMAB
     Dosage: 1130 MG, Q3 WKS
     Route: 042
  4. GLICAZIDE [Concomitant]
     Active Substance: GLICLAZIDE
     Indication: PRODUCT USED FOR UNKNOWN INDICATION
     Dosage: UNK
  5. OXYCODONE HYDROCHLORIDE. [Concomitant]
     Active Substance: OXYCODONE HYDROCHLORIDE
     Indication: PRODUCT USED FOR UNKNOWN INDICATION
     Dosage: UNK
  6. FUROSEMIDE. [Concomitant]
     Active Substance: FUROSEMIDE
     Indication: PRODUCT USED FOR UNKNOWN INDICATION
     Dosage: UNK
  7. PREDNISONE. [Concomitant]
     Active Substance: PREDNISONE
     Indication: PRODUCT USED FOR UNKNOWN INDICATION
     Dosage: 10 MG, 1D
  8. PLAQUENIL [Concomitant]
     Active Substance: HYDROXYCHLOROQUINE SULFATE
     Indication: PRODUCT USED FOR UNKNOWN INDICATION
     Dosage: UNK
  9. COVERSYL [Concomitant]
     Active Substance: PERINDOPRIL
     Indication: PRODUCT USED FOR UNKNOWN INDICATION
     Dosage: UNK

REACTIONS (31)
  - Lower respiratory tract infection [Unknown]
  - Blood glucose increased [Not Recovered/Not Resolved]
  - Headache [Recovered/Resolved]
  - Hair disorder [Unknown]
  - Face oedema [Not Recovered/Not Resolved]
  - Nausea [Unknown]
  - Neuropathy peripheral [Not Recovered/Not Resolved]
  - Gastrooesophageal reflux disease [Not Recovered/Not Resolved]
  - Weight increased [Unknown]
  - Insomnia [Not Recovered/Not Resolved]
  - Bronchospasm [Not Recovered/Not Resolved]
  - Photophobia [Unknown]
  - Oedema peripheral [Unknown]
  - Stress [Unknown]
  - Throat irritation [Unknown]
  - Dry mouth [Not Recovered/Not Resolved]
  - Urticaria [Not Recovered/Not Resolved]
  - Erythema [Unknown]
  - Mobility decreased [Recovered/Resolved]
  - Musculoskeletal stiffness [Recovered/Resolved]
  - Electrolyte imbalance [Unknown]
  - Laryngeal oedema [Not Recovered/Not Resolved]
  - Pain [Unknown]
  - Ear pruritus [Not Recovered/Not Resolved]
  - Drug effect decreased [Unknown]
  - Feeling abnormal [Unknown]
  - Muscle spasms [Unknown]
  - Fluid retention [Not Recovered/Not Resolved]
  - Pain in extremity [Unknown]
  - Rash [Not Recovered/Not Resolved]
  - Systemic lupus erythematosus [Unknown]

NARRATIVE: CASE EVENT DATE: 20130826
